FAERS Safety Report 7989070-1 (Version None)
Quarter: 2011Q4

REPORT INFORMATION
  Report Type: 
  Country: None (occurrence: None)
  Receive Date: 20111219
  Receipt Date: 20111207
  Transmission Date: 20120403
  Serious: Yes (Hospitalization, Other)
  Sender: FDA-Public Use
  Company Number: US-BAYER-2011-033120

PATIENT
  Age: 34 Year
  Sex: Female
  Weight: 86 kg

DRUGS (17)
  1. METFORMIN HCL [Concomitant]
     Indication: POLYCYSTIC OVARIES
     Dosage: UNK
     Dates: start: 20050101, end: 20110801
  2. VALACICLOVIR [Concomitant]
  3. DROSPIRENONE AND ETHINYL ESTRADIOL [Suspect]
     Dosage: UNK
     Dates: start: 20090201, end: 20090401
  4. NAPROXEN [Concomitant]
     Dosage: 550 MG, UNK
  5. CYCLOBENZAPRINE [Concomitant]
  6. IBUPROFEN [Concomitant]
  7. LORTAB [Concomitant]
     Dosage: 10 MG, UNK
  8. VALTREX [Concomitant]
     Indication: HERPES VIRUS INFECTION
     Dosage: UNK
     Dates: start: 20040101
  9. CYMBALTA [Concomitant]
     Dosage: 50 MG, UNK
  10. METHOCARBAMOL [Concomitant]
     Dosage: 750 MG, UNK
  11. LEVOTHYROXINE SODIUM [Concomitant]
     Indication: HYPOTHYROIDISM
     Dosage: UNK
     Dates: start: 19980101
  12. TRIAMTERENE [Concomitant]
     Dosage: UNK
     Dates: start: 20050101
  13. PROPRANOLOL [Concomitant]
     Indication: HYPERTENSION
     Dosage: UNK
     Dates: start: 20050101, end: 20110801
  14. HYDROCODONE BITARTRATE AND ACETAMINOPHEN [Concomitant]
  15. DYAZIDE [Concomitant]
  16. PROMETHAZINE [Concomitant]
     Dosage: 25 MG, UNK
  17. SKELAXIN [Concomitant]
     Dosage: 800 MG, UNK

REACTIONS (7)
  - CEREBROVASCULAR ACCIDENT [None]
  - PULMONARY EMBOLISM [None]
  - DEEP VEIN THROMBOSIS [None]
  - MYOCARDIAL INFARCTION [None]
  - GALLBLADDER DISORDER [None]
  - PAIN [None]
  - FEAR [None]
